FAERS Safety Report 21037880 (Version 1)
Quarter: 2022Q3

REPORT INFORMATION
  Report Type: Spontaneous
  Country: US (occurrence: US)
  Receive Date: 20220704
  Receipt Date: 20220704
  Transmission Date: 20221026
  Serious: Yes (Life-Threatening, Other)
  Sender: FDA-Public Use
  Company Number: US-drreddys-LIT/USA/22/0151757

PATIENT
  Age: 21 Year
  Sex: Male

DRUGS (5)
  1. LEVETIRACETAM [Suspect]
     Active Substance: LEVETIRACETAM
     Indication: Epilepsy with myoclonic-atonic seizures
  2. LAMOTRIGINE [Suspect]
     Active Substance: LAMOTRIGINE
     Indication: Epilepsy with myoclonic-atonic seizures
  3. BRIVARACETAM [Suspect]
     Active Substance: BRIVARACETAM
     Indication: Epilepsy with myoclonic-atonic seizures
  4. PHENOBARBITAL [Suspect]
     Active Substance: PHENOBARBITAL
     Indication: Epilepsy with myoclonic-atonic seizures
  5. DEXAMETHASONE SODIUM PHOSPHATE [Concomitant]
     Active Substance: DEXAMETHASONE SODIUM PHOSPHATE
     Indication: Brain oedema
     Dosage: HIGH DOSE, TAPERED OVER 1-2 WEEKS POSTOPERATIVELY

REACTIONS (2)
  - Drug ineffective [Unknown]
  - Epilepsy [Unknown]
